FAERS Safety Report 14851853 (Version 2)
Quarter: 2018Q4

REPORT INFORMATION
  Report Type: Spontaneous
  Country: FR (occurrence: FR)
  Receive Date: 20180507
  Receipt Date: 20181025
  Transmission Date: 20190204
  Serious: Yes (Other)
  Sender: FDA-Public Use
  Company Number: FR-MERCK KGAA-2047275

PATIENT
  Age: 65 Year
  Sex: Female
  Weight: 105 kg

DRUGS (1)
  1. EUTHYROX [Suspect]
     Active Substance: LEVOTHYROXINE SODIUM
     Indication: PRODUCT USED FOR UNKNOWN INDICATION

REACTIONS (25)
  - Diarrhoea [None]
  - Impaired work ability [None]
  - Blood uric acid increased [None]
  - Headache [None]
  - Amnesia [None]
  - Pruritus [None]
  - Asthenia [None]
  - Somnolence [None]
  - Vertigo [None]
  - Hyperhidrosis [None]
  - Flatulence [None]
  - Rash [None]
  - Hypersomnia [None]
  - Coma [None]
  - Migraine [None]
  - Abdominal pain [None]
  - Social avoidant behaviour [None]
  - Disturbance in attention [None]
  - Abdominal distension [None]
  - Reaction to excipient [None]
  - Paraesthesia [None]
  - Irritability [None]
  - Thyroglobulin decreased [None]
  - Aphasia [None]
  - Thyroxine increased [None]

NARRATIVE: CASE EVENT DATE: 20170719
